FAERS Safety Report 7928738-X (Version None)
Quarter: 2011Q4

REPORT INFORMATION
  Report Type: 
  Country: None (occurrence: None)
  Receive Date: 20111118
  Receipt Date: 20111116
  Transmission Date: 20120403
  Serious: Yes (Other)
  Sender: FDA-Public Use
  Company Number: CHPA2011US016041

PATIENT
  Sex: Female

DRUGS (6)
  1. DRUG THERAPY NOS [Concomitant]
  2. VOLTAREN [Suspect]
     Indication: MUSCLE SPASMS
     Dosage: HEAD TO TOE, DAILY
     Route: 061
     Dates: start: 20110701
  3. VOLTAREN [Suspect]
     Indication: ACNE
  4. PROVIGIL [Concomitant]
     Dosage: UNK, UNK
     Route: 065
  5. VOLTAREN [Suspect]
     Indication: INFLAMMATION
  6. ZOFRAN [Concomitant]
     Indication: IMPAIRED GASTRIC EMPTYING

REACTIONS (8)
  - HYPERTENSION [None]
  - THERAPEUTIC RESPONSE UNEXPECTED [None]
  - RECTAL HAEMORRHAGE [None]
  - FOOT FRACTURE [None]
  - DRUG ADMINISTERED AT INAPPROPRIATE SITE [None]
  - HAEMATOCHEZIA [None]
  - OFF LABEL USE [None]
  - DRUG DISPENSING ERROR [None]
